FAERS Safety Report 4310419-5 (Version None)
Quarter: 2004Q1

REPORT INFORMATION
  Report Type: 
  Country: None (occurrence: None)
  Receive Date: 20040301
  Receipt Date: 20040223
  Transmission Date: 20041129
  Serious: Yes (Other)
  Sender: FDA-Public Use
  Company Number: GBWYE601225FEB04

PATIENT
  Age: 40 Year
  Sex: Female

DRUGS (2)
  1. EFFEXOR [Suspect]
     Indication: DEPRESSION
     Dosage: 150 MG FREQUENCY UNSPECIFIED
     Route: 048
  2. CITALOPRAM (CITALOPRAM) [Concomitant]

REACTIONS (6)
  - COGWHEEL RIGIDITY [None]
  - DRUG EFFECT DECREASED [None]
  - DRUG WITHDRAWAL SYNDROME [None]
  - EUPHORIC MOOD [None]
  - HYPERREFLEXIA [None]
  - TREATMENT NONCOMPLIANCE [None]
